FAERS Safety Report 21957543 (Version 1)
Quarter: 2023Q1

REPORT INFORMATION
  Report Type: Spontaneous
  Country: IT (occurrence: IT)
  Receive Date: 20230206
  Receipt Date: 20230206
  Transmission Date: 20230418
  Serious: Yes (Hospitalization)
  Sender: FDA-Public Use
  Company Number: None

PATIENT
  Age: 48 Year
  Sex: Male
  Weight: 80 kg

DRUGS (1)
  1. DULOXETINE [Suspect]
     Active Substance: DULOXETINE
     Indication: Product used for unknown indication
     Dosage: 3CP DA 60MG+2CP DA 20MG
     Route: 065

REACTIONS (4)
  - Overdose [Recovered/Resolved]
  - Tremor [Recovered/Resolved]
  - Agitation [Recovered/Resolved]
  - Muscle contractions involuntary [Recovered/Resolved]

NARRATIVE: CASE EVENT DATE: 20220301
